FAERS Safety Report 22685957 (Version 4)
Quarter: 2025Q4

REPORT INFORMATION
  Report Type: Report from Study
  Country: CA (occurrence: CA)
  Receive Date: 20230710
  Receipt Date: 20251225
  Transmission Date: 20260117
  Serious: Yes (Other)
  Sender: TAKEDA
  Company Number: CA-TAKEDA-2022TUS011022

PATIENT
  Age: 49 Year
  Sex: Male
  Weight: 70.3 kg

DRUGS (3)
  1. VEDOLIZUMAB [Suspect]
     Active Substance: VEDOLIZUMAB
     Indication: Crohn^s disease
     Dosage: 300 MILLIGRAM
  2. VEDOLIZUMAB [Suspect]
     Active Substance: VEDOLIZUMAB
     Dosage: 300 MILLIGRAM
  3. VEDOLIZUMAB [Suspect]
     Active Substance: VEDOLIZUMAB
     Dosage: 300 MILLIGRAM

REACTIONS (15)
  - Haematochezia [Unknown]
  - Rectal discharge [Unknown]
  - Malaise [Unknown]
  - Arthritis [Unknown]
  - Hypoaesthesia [Unknown]
  - Post procedural complication [Unknown]
  - Eye inflammation [Unknown]
  - Social problem [Unknown]
  - Impaired work ability [Unknown]
  - Chest pain [Unknown]
  - Abdominal pain [Unknown]
  - Muscle spasms [Unknown]
  - Hypersensitivity [Unknown]
  - Constipation [Unknown]
  - Nausea [Unknown]
